FAERS Safety Report 16531092 (Version 1)
Quarter: 2019Q3

REPORT INFORMATION
  Report Type: Spontaneous
  Country: GB (occurrence: GB)
  Receive Date: 20190705
  Receipt Date: 20190705
  Transmission Date: 20191004
  Serious: Yes (Disabling, Other)
  Sender: FDA-Public Use
  Company Number: GB-AUROBINDO-AUR-APL-2019-037365

PATIENT

DRUGS (1)
  1. NAPROXEN. [Suspect]
     Active Substance: NAPROXEN
     Indication: JOINT EFFUSION
     Dosage: 2 DOSAGE FORM,IN TOTAL
     Route: 048

REACTIONS (1)
  - Abdominal pain upper [Recovered/Resolved with Sequelae]
